FAERS Safety Report 25977356 (Version 1)
Quarter: 2025Q4

REPORT INFORMATION
  Report Type: Spontaneous
  Country: US (occurrence: US)
  Receive Date: 20251030
  Receipt Date: 20251030
  Transmission Date: 20260117
  Serious: No
  Sender: SANDOZ
  Company Number: US-SANDOZ-SDZ2025US080252

PATIENT
  Sex: Male

DRUGS (1)
  1. CIPROFLOXACIN AND DEXAMETHASONE [Suspect]
     Active Substance: CIPROFLOXACIN HYDROCHLORIDE\DEXAMETHASONE
     Indication: Infection
     Dosage: 7.5 ML
     Route: 065

REACTIONS (1)
  - Drug ineffective [Unknown]
